FAERS Safety Report 12442102 (Version 1)
Quarter: 2016Q2

REPORT INFORMATION
  Report Type: Report from Study
  Country: KR (occurrence: KR)
  Receive Date: 20160607
  Receipt Date: 20160607
  Transmission Date: 20160815
  Serious: Yes (Other)
  Sender: FDA-Public Use
  Company Number: KR-SUN PHARMACEUTICAL INDUSTRIES LTD-2016R1-117583

PATIENT

DRUGS (1)
  1. PAMIDRONATE [Suspect]
     Active Substance: PAMIDRONATE DISODIUM
     Indication: OSTEOSARCOMA
     Dosage: 1.5 MG/KG EVERY 6 WEEKS FOR 4 TO 6 CYCLES
     Route: 042

REACTIONS (1)
  - Acute phase reaction [Unknown]
